FAERS Safety Report 16071864 (Version 1)
Quarter: 2019Q1

REPORT INFORMATION
  Report Type: Spontaneous
  Country: US (occurrence: US)
  Receive Date: 20190213
  Receipt Date: 20190213
  Transmission Date: 20190418
  Serious: No
  Sender: FDA-Public Use
  Company Number: None

PATIENT
  Age: 75 Year
  Sex: Female

DRUGS (1)
  1. METHOTREXATE TAB 2.5MG [Suspect]
     Active Substance: METHOTREXATE
     Route: 048
     Dates: start: 201811

REACTIONS (2)
  - Product dispensing error [None]
  - Intercepted product dispensing error [None]

NARRATIVE: CASE EVENT DATE: 20190206
